FAERS Safety Report 4861621-5 (Version None)
Quarter: 2005Q4

REPORT INFORMATION
  Report Type: 
  Country: None (occurrence: None)
  Receive Date: 20051220
  Receipt Date: 20030707
  Transmission Date: 20060501
  Serious: Yes (Hospitalization, Other)
  Sender: FDA-Public Use
  Company Number: US-ABBOTT-03P-163-0223737-00

PATIENT
  Sex: Female

DRUGS (34)
  1. DEPAKOTE [Suspect]
     Indication: CONVULSION
     Route: 048
     Dates: start: 19961212, end: 19970201
  2. DEPAKOTE [Suspect]
     Route: 048
     Dates: start: 19970529, end: 19980601
  3. DEPAKOTE [Suspect]
     Route: 048
     Dates: start: 19980602, end: 19980731
  4. DEPAKOTE [Suspect]
     Route: 048
     Dates: start: 19980801, end: 19990101
  5. DEPAKOTE [Suspect]
     Route: 048
     Dates: start: 20000609
  6. DEPAKOTE [Suspect]
     Route: 048
     Dates: start: 20000101, end: 20001010
  7. DEPAKOTE [Suspect]
     Route: 048
     Dates: start: 20001011, end: 20001201
  8. DEPAKOTE [Suspect]
     Route: 048
     Dates: start: 20010803, end: 20010829
  9. DEPAKOTE [Suspect]
     Route: 048
     Dates: start: 20010830, end: 20020106
  10. DEPAKOTE [Suspect]
     Dates: start: 20020107, end: 20020127
  11. DEPAKOTE [Suspect]
     Route: 048
     Dates: start: 20020128
  12. DEPAKOTE [Suspect]
     Route: 048
     Dates: start: 20050128, end: 20050310
  13. DEPAKOTE [Suspect]
  14. DEPAKOTE [Suspect]
  15. DEPAKOTE [Suspect]
  16. DEPAKOTE [Suspect]
  17. DEPAKOTE [Suspect]
  18. DEPAKOTE ER [Suspect]
     Indication: CONVULSION
     Dates: start: 20001215, end: 20010801
  19. DEPAKOTE ER [Suspect]
     Route: 048
     Dates: start: 20010802, end: 20010802
  20. DEPAKOTE ER [Suspect]
     Route: 048
     Dates: start: 20010702, end: 20010801
  21. DEPAKOTE ER [Suspect]
     Dosage: 1500 MG TWICE DAILY
     Route: 048
     Dates: start: 20020127
  22. CILEST [Concomitant]
     Indication: OVARIAN CYST
     Dates: start: 20000717
  23. LEVETIRACETAM [Concomitant]
  24. PROPOX [Concomitant]
     Indication: PAIN
  25. DOCUSATE [Concomitant]
     Indication: DRUG USE FOR UNKNOWN INDICATION
  26. FOLIC ACID [Concomitant]
     Indication: VITAMIN SUPPLEMENTATION
  27. FOLIC ACID [Concomitant]
  28. PHENERGAN [Concomitant]
     Indication: DRUG USE FOR UNKNOWN INDICATION
     Route: 048
     Dates: end: 19980801
  29. ATENOLOL [Concomitant]
     Indication: DRUG USE FOR UNKNOWN INDICATION
  30. TOPROL-XL [Concomitant]
     Indication: DRUG USE FOR UNKNOWN INDICATION
  31. CTEX [Concomitant]
     Indication: DRUG USE FOR UNKNOWN INDICATION
  32. DYNEX [Concomitant]
     Indication: DRUG USE FOR UNKNOWN INDICATION
  33. IRON [Concomitant]
     Indication: MINERAL SUPPLEMENTATION
  34. MEDROXYPROGESTERONE ACETATE [Concomitant]

REACTIONS (78)
  - ABDOMINAL PAIN [None]
  - ACTIVITIES OF DAILY LIVING IMPAIRED [None]
  - ALOPECIA [None]
  - ANAEMIA [None]
  - ANXIETY [None]
  - ARTHROPOD STING [None]
  - ASTHENIA [None]
  - BACK INJURY [None]
  - BACK PAIN [None]
  - BLADDER PAIN [None]
  - BLOOD CALCIUM DECREASED [None]
  - BLOOD CREATININE DECREASED [None]
  - BLOOD KETONE BODY [None]
  - BLOOD OSMOLARITY DECREASED [None]
  - CANDIDIASIS [None]
  - CELLULITIS [None]
  - CHOKING [None]
  - CONVERSION DISORDER [None]
  - CONVULSION [None]
  - CYSTITIS [None]
  - DECREASED APPETITE [None]
  - DIARRHOEA [None]
  - DIZZINESS [None]
  - DRUG DOSE OMISSION [None]
  - DRUG EXPOSURE BEFORE PREGNANCY [None]
  - DRUG LEVEL INCREASED [None]
  - DYSPNOEA [None]
  - DYSSTASIA [None]
  - EAR PAIN [None]
  - ENDOMETRITIS DECIDUAL [None]
  - EXCORIATION [None]
  - FATIGUE [None]
  - FEELING HOT [None]
  - GENITALIA EXTERNAL PAINFUL [None]
  - GRAND MAL CONVULSION [None]
  - HAEMATOCRIT DECREASED [None]
  - HAEMOGLOBIN DECREASED [None]
  - HEAD INJURY [None]
  - HEADACHE [None]
  - HYPERHIDROSIS [None]
  - HYPERSOMNIA [None]
  - JOINT EFFUSION [None]
  - LOSS OF CONSCIOUSNESS [None]
  - MALAISE [None]
  - MEAN PLATELET VOLUME DECREASED [None]
  - MIDDLE INSOMNIA [None]
  - MIGRAINE [None]
  - MUSCLE SPASMS [None]
  - MUSCLE STRAIN [None]
  - MUSCULOSKELETAL CHEST PAIN [None]
  - NAUSEA [None]
  - NECK INJURY [None]
  - NECK PAIN [None]
  - OVARIAN CYST [None]
  - PAIN IN EXTREMITY [None]
  - PCO2 DECREASED [None]
  - PHARYNGOLARYNGEAL PAIN [None]
  - PHONOPHOBIA [None]
  - PHOTOPHOBIA [None]
  - PREGNANCY [None]
  - PYREXIA [None]
  - RED BLOOD CELL COUNT DECREASED [None]
  - RHINITIS ALLERGIC [None]
  - ROAD TRAFFIC ACCIDENT [None]
  - SCOLIOSIS [None]
  - STOMACH DISCOMFORT [None]
  - SYNCOPE [None]
  - TACHYCARDIA [None]
  - TINNITUS [None]
  - UNEVALUABLE EVENT [None]
  - UPPER RESPIRATORY TRACT INFECTION [None]
  - VAGINAL DISCHARGE [None]
  - VAGINAL HAEMORRHAGE [None]
  - VIRAL INFECTION [None]
  - VISION BLURRED [None]
  - VOMITING [None]
  - VULVAL DISORDER [None]
  - WHIPLASH INJURY [None]
